FAERS Safety Report 5330816-9 (Version None)
Quarter: 2007Q2

REPORT INFORMATION
  Report Type: 
  Country: None (occurrence: None)
  Receive Date: 20070518
  Receipt Date: 20070518
  Transmission Date: 20071010
  Serious: Yes (Hospitalization)
  Sender: FDA-Public Use
  Company Number: None

PATIENT
  Age: 81 Year
  Sex: Male
  Weight: 82.1011 kg

DRUGS (24)
  1. BEVACIZUMAB [Suspect]
     Indication: HEPATIC NEOPLASM MALIGNANT
     Dosage: 1567 MG IV Q 21 DAYS
     Route: 042
     Dates: start: 20060829, end: 20070424
  2. ERLOTINIB [Suspect]
     Indication: HEPATIC NEOPLASM MALIGNANT
     Dosage: 150MG PO QD
     Route: 048
     Dates: start: 20060829, end: 20070516
  3. ASPIRIN [Concomitant]
  4. TOPROL-XL [Concomitant]
  5. CLONIDINE [Concomitant]
  6. COZAAR [Concomitant]
  7. NORVASC [Concomitant]
  8. UNIRETIC [Concomitant]
  9. METFORMIN HCL [Concomitant]
  10. RELAFENS [Concomitant]
  11. ZYRTEC [Concomitant]
  12. NEXIUM [Concomitant]
  13. ZANTAC [Concomitant]
  14. APAP TAB [Concomitant]
  15. CLINDAMYCIN [Concomitant]
  16. CLARITIN [Concomitant]
  17. COLD + COUGH [Concomitant]
  18. ATROVENT [Concomitant]
  19. MEGACE [Concomitant]
  20. KENALOG [Concomitant]
  21. 1% GEL [Concomitant]
  22. ALKA SELTZER [Concomitant]
  23. ECONAZOLE POWDER [Concomitant]
  24. LOTRISONE [Concomitant]

REACTIONS (10)
  - ANOREXIA [None]
  - CHILLS [None]
  - DEHYDRATION [None]
  - DIARRHOEA [None]
  - DIVERTICULITIS [None]
  - HEPATIC MASS [None]
  - INFECTION [None]
  - MASS [None]
  - ORAL INTAKE REDUCED [None]
  - RENAL FAILURE ACUTE [None]
